FAERS Safety Report 12770996 (Version 2)
Quarter: 2016Q4

REPORT INFORMATION
  Report Type: Spontaneous
  Country: GB (occurrence: GB)
  Receive Date: 20160922
  Receipt Date: 20161007
  Transmission Date: 20170207
  Serious: Yes (Other)
  Sender: FDA-Public Use
  Company Number: GB-PFIZER INC-2016437748

PATIENT
  Age: 39 Year
  Sex: Female
  Weight: 88 kg

DRUGS (7)
  1. OMEPRAZOLE. [Concomitant]
     Active Substance: OMEPRAZOLE
     Dosage: 1 DF, 1X/DAY
     Dates: start: 20160908
  2. PARACETAMOL [Concomitant]
     Active Substance: ACETAMINOPHEN
     Dosage: UNK, 4X/DAY
     Dates: start: 20140616, end: 20160729
  3. SERTRALINE [Concomitant]
     Active Substance: SERTRALINE HYDROCHLORIDE
     Dosage: 1 DF, ONCE DAILY
     Dates: start: 20150324, end: 20160729
  4. CLENIL MODULITE [Concomitant]
     Active Substance: BECLOMETHASONE DIPROPIONATE
     Dosage: 2 DF, 2X/DAY
     Dates: start: 20160317
  5. JEXT [Concomitant]
     Dosage: UNK
     Dates: start: 20130110
  6. TRAMADOL. [Concomitant]
     Active Substance: TRAMADOL
     Dosage: 1 OR 2 UNK, 4X/DAY
     Dates: start: 20140210, end: 20160729
  7. PREGABALIN. [Suspect]
     Active Substance: PREGABALIN
     Dosage: UNK
     Dates: start: 20150415

REACTIONS (2)
  - Influenza like illness [Recovered/Resolved]
  - Drug withdrawal syndrome [Recovered/Resolved]

NARRATIVE: CASE EVENT DATE: 20160901
